FAERS Safety Report 5503903-X (Version None)
Quarter: 2007Q4

REPORT INFORMATION
  Report Type: 
  Country: None (occurrence: None)
  Receive Date: 20071030
  Receipt Date: 20071030
  Transmission Date: 20080405
  Serious: Yes (Other)
  Sender: FDA-Public Use
  Company Number: None

PATIENT
  Sex: Female
  Weight: 70.3075 kg

DRUGS (2)
  1. EFFEXOR XR [Suspect]
     Indication: DEATH OF PET
     Dosage: 75MG 1X/DAY PO
     Route: 048
     Dates: start: 19990701, end: 20071013
  2. EFFEXOR XR [Suspect]
     Indication: DEPRESSION
     Dosage: 75MG 1X/DAY PO
     Route: 048
     Dates: start: 19990701, end: 20071013

REACTIONS (15)
  - ABNORMAL DREAMS [None]
  - ACTIVITIES OF DAILY LIVING IMPAIRED [None]
  - ARTHRALGIA [None]
  - COLD SWEAT [None]
  - DIZZINESS [None]
  - FEELING HOT [None]
  - FEELING JITTERY [None]
  - HYPERSOMNIA [None]
  - IMPAIRED WORK ABILITY [None]
  - MEMORY IMPAIRMENT [None]
  - MYALGIA [None]
  - NAUSEA [None]
  - PALPITATIONS [None]
  - TREMOR [None]
  - WITHDRAWAL SYNDROME [None]
